FAERS Safety Report 4272565-4 (Version None)
Quarter: 2004Q1

REPORT INFORMATION
  Report Type: 
  Country: None (occurrence: None)
  Receive Date: 20040114
  Receipt Date: 20040114
  Transmission Date: 20041129
  Serious: No
  Sender: FDA-Public Use
  Company Number: None

PATIENT
  Age: 15 Year
  Sex: Male

DRUGS (1)
  1. MINOCYCLINE HCL [Suspect]
     Indication: ACNE CYSTIC
     Dosage: BID (PO)
     Route: 048
     Dates: start: 20031220, end: 20040106

REACTIONS (3)
  - ARTHRALGIA [None]
  - PYREXIA [None]
  - URTICARIA [None]
